FAERS Safety Report 14044029 (Version 1)
Quarter: 2017Q4

REPORT INFORMATION
  Report Type: Spontaneous
  Country: US (occurrence: None)
  Receive Date: 20171004
  Receipt Date: 20171004
  Transmission Date: 20180321
  Serious: Yes (Other)
  Sender: FDA-Public Use
  Company Number: None

PATIENT
  Age: 64 Year
  Sex: Male

DRUGS (1)
  1. TALTZ [Suspect]
     Active Substance: IXEKIZUMAB
     Indication: PSORIASIS
     Dosage: 80 MG EVERY 2 WEEKS
     Route: 058
     Dates: start: 20170908, end: 20171004

REACTIONS (1)
  - Injection site pain [None]

NARRATIVE: CASE EVENT DATE: 20171004
